FAERS Safety Report 5479011-3 (Version None)
Quarter: 2007Q4

REPORT INFORMATION
  Report Type: 
  Country: None (occurrence: None)
  Receive Date: 20071006
  Receipt Date: 20070925
  Transmission Date: 20080405
  Serious: Yes (Hospitalization)
  Sender: FDA-Public Use
  Company Number: SE-PFIZER INC-2007080481

PATIENT
  Age: 23 Year
  Sex: Female

DRUGS (2)
  1. LYRICA [Suspect]
     Indication: DEPRESSION
  2. ANTIDEPRESSANTS [Concomitant]

REACTIONS (1)
  - ELECTROCONVULSIVE THERAPY [None]
